FAERS Safety Report 4732866-X (Version None)
Quarter: 2005Q3

REPORT INFORMATION
  Report Type: 
  Country: None (occurrence: None)
  Receive Date: 20050803
  Receipt Date: 20050413
  Transmission Date: 20060218
  Serious: No
  Sender: FDA-Public Use
  Company Number: US-GLAXOSMITHKLINE-A0553995A

PATIENT
  Age: 56 Year
  Sex: Male

DRUGS (9)
  1. AVANDAMET [Suspect]
     Route: 048
     Dates: start: 20041101
  2. CARDIZEM [Concomitant]
  3. COUMADIN [Concomitant]
  4. DEPAKOTE [Concomitant]
  5. DILANTIN [Concomitant]
  6. LOTENSIN [Concomitant]
  7. MAG-OX [Concomitant]
  8. SINEMET [Concomitant]
  9. K-DUR 10 [Concomitant]

REACTIONS (1)
  - HEADACHE [None]
